FAERS Safety Report 16204898 (Version 5)
Quarter: 2019Q2

REPORT INFORMATION
  Report Type: Report from Study
  Country: US (occurrence: US)
  Receive Date: 20190416
  Receipt Date: 20190522
  Transmission Date: 20190711
  Serious: Yes (Hospitalization)
  Sender: FDA-Public Use
  Company Number: US-ACTELION-A-US2018-184319

PATIENT
  Age: 60 Year
  Sex: Female
  Weight: 53.06 kg

DRUGS (6)
  1. OPSUMIT [Suspect]
     Active Substance: MACITENTAN
     Indication: PULMONARY ARTERIAL HYPERTENSION
     Dosage: 10 MG, QD
     Route: 048
  2. ORENITRAM [Suspect]
     Active Substance: TREPROSTINIL
     Dosage: 1.75 MG, TID
     Route: 048
  3. OPSUMIT [Suspect]
     Active Substance: MACITENTAN
     Dosage: 10 MG, QD
     Route: 048
  4. ORENITRAM [Suspect]
     Active Substance: TREPROSTINIL
     Indication: PRODUCT USED FOR UNKNOWN INDICATION
     Dosage: 1.5 MG, TID
     Route: 048
  5. REVATIO [Concomitant]
     Active Substance: SILDENAFIL CITRATE
     Dosage: 20 MG, TID
  6. BRILINTA [Concomitant]
     Active Substance: TICAGRELOR

REACTIONS (14)
  - Dyspnoea [Recovered/Resolved]
  - Cough [Unknown]
  - Flushing [Unknown]
  - Hot flush [Unknown]
  - Diarrhoea [Unknown]
  - Malaise [Unknown]
  - Musculoskeletal stiffness [Unknown]
  - Headache [Unknown]
  - Sinusitis [Unknown]
  - Pain [Unknown]
  - Pain in extremity [Unknown]
  - Unevaluable event [Unknown]
  - Chills [Unknown]
  - Stent placement [Unknown]

NARRATIVE: CASE EVENT DATE: 20190424
